FAERS Safety Report 6939427-2 (Version None)
Quarter: 2010Q3

REPORT INFORMATION
  Report Type: 
  Country: None (occurrence: None)
  Receive Date: 20100819
  Receipt Date: 20100802
  Transmission Date: 20110219
  Serious: Yes (Other)
  Sender: FDA-Public Use
  Company Number: CV20100410

PATIENT
  Age: 27 Year
  Sex: Female

DRUGS (1)
  1. CEFUROXIME [Suspect]
     Indication: CAESAREAN SECTION
     Dosage: 3MG, (2 X 1.5, 8 HOURS PART)
     Route: 042

REACTIONS (2)
  - DRUG HYPERSENSITIVITY [None]
  - TINNITUS [None]
